FAERS Safety Report 6369724-3 (Version None)
Quarter: 2009Q3

REPORT INFORMATION
  Report Type: 
  Country: None (occurrence: None)
  Receive Date: 20090923
  Receipt Date: 20090818
  Transmission Date: 20100115
  Serious: Yes (Hospitalization)
  Sender: FDA-Public Use
  Company Number: FR-PFIZER INC-2009271107

PATIENT
  Age: 47 Year

DRUGS (5)
  1. ATARAX [Suspect]
     Indication: DRUG WITHDRAWAL SYNDROME
     Dosage: 300 MG, DAILY
     Route: 048
     Dates: start: 20090528, end: 20090606
  2. HALDOL [Suspect]
     Indication: INSOMNIA
     Dosage: 30 GTT, DAILY
     Route: 048
     Dates: start: 20090529, end: 20090606
  3. DEROXAT [Concomitant]
     Indication: DEPRESSION
     Dosage: 40 MG, UNK
     Dates: start: 20070101
  4. XANAX [Concomitant]
     Dosage: 15 DF DAILY
     Dates: start: 20090528
  5. MYOLASTAN [Concomitant]
     Dosage: 4 DF DAILY

REACTIONS (4)
  - ANTICHOLINERGIC SYNDROME [None]
  - EXTRAPYRAMIDAL DISORDER [None]
  - OVERDOSE [None]
  - PRURITUS GENERALISED [None]
